FAERS Safety Report 16991939 (Version 1)
Quarter: 2019Q4

REPORT INFORMATION
  Report Type: Spontaneous
  Country: AR (occurrence: AR)
  Receive Date: 20191104
  Receipt Date: 20191104
  Transmission Date: 20200122
  Serious: Yes (Hospitalization, Other)
  Sender: FDA-Public Use
  Company Number: AR-SA-2019SA074497

PATIENT
  Age: 37 Year
  Sex: Female
  Weight: 100 kg

DRUGS (3)
  1. CLEXANE [Suspect]
     Active Substance: ENOXAPARIN SODIUM
     Indication: HYPERCOAGULATION
     Dosage: 40 MG, QD
     Route: 058
     Dates: start: 20190226, end: 20191028
  2. CLEXANE [Suspect]
     Active Substance: ENOXAPARIN SODIUM
     Indication: FACTOR VIII DEFICIENCY
  3. CLEXANE [Suspect]
     Active Substance: ENOXAPARIN SODIUM
     Indication: BLOOD PRESSURE ABNORMAL

REACTIONS (3)
  - Product use issue [Unknown]
  - Syncope [Recovered/Resolved]
  - Exposure during pregnancy [Unknown]
